FAERS Safety Report 9681702 (Version 2)
Quarter: 2013Q4

REPORT INFORMATION
  Report Type: Spontaneous
  Country: US (occurrence: US)
  Receive Date: 20131111
  Receipt Date: 20131227
  Transmission Date: 20140711
  Serious: Yes (Other)
  Sender: FDA-Public Use
  Company Number: US-TEVA-443472USA

PATIENT
  Age: 78 Year
  Sex: Female
  Weight: 59.47 kg

DRUGS (13)
  1. AZILECT [Suspect]
     Indication: PARKINSON^S DISEASE
     Route: 048
  2. CARBIDOPA W/LEVODOPA [Concomitant]
     Indication: PARKINSON^S DISEASE
     Dosage: 25/100
     Route: 048
  3. MIRAPEX [Concomitant]
     Indication: PARKINSON^S DISEASE
     Dosage: 150 MILLIGRAM DAILY;
     Route: 048
  4. LOVASTATIN [Concomitant]
     Indication: HYPERCHOLESTEROLAEMIA
     Dosage: 20 MILLIGRAM DAILY;
     Route: 048
  5. LISINOPRIL [Concomitant]
     Indication: HYPERTENSION
     Dosage: 10 MILLIGRAM DAILY;
     Route: 048
  6. PRESERVISION [Concomitant]
     Indication: MACULAR DEGENERATION
  7. GLUCOSAMINE W/CHONDROITIN SULF./MANGAN./VIT C [Concomitant]
  8. LUCENTIS [Concomitant]
     Indication: MACULAR DEGENERATION
  9. ASPIRIN [Concomitant]
     Indication: PROPHYLAXIS
  10. CALCIUM [Concomitant]
  11. VITAMIN D3 [Concomitant]
  12. STOOL SOFTENERS [Concomitant]
     Indication: CONSTIPATION
  13. FISH OIL [Concomitant]

REACTIONS (2)
  - Knee arthroplasty [Not Recovered/Not Resolved]
  - Pain [Not Recovered/Not Resolved]
